FAERS Safety Report 8578207-1 (Version None)
Quarter: 2012Q3

REPORT INFORMATION
  Report Type: 
  Country: None (occurrence: None)
  Receive Date: 20120808
  Receipt Date: 20120806
  Transmission Date: 20120928
  Serious: No
  Sender: FDA-Public Use
  Company Number: US-PFIZER INC-2012191711

PATIENT
  Age: 42 Year
  Sex: Male
  Weight: 127 kg

DRUGS (4)
  1. GEODON [Suspect]
     Indication: BIPOLAR DISORDER
     Dosage: 40 MG IN THE MORNING AND 60 MG IN NIGHT
     Dates: end: 20120601
  2. ACCUPRIL [Concomitant]
     Indication: HYPERTENSION
     Dosage: 20 MG, DAILY
  3. NOVOLIN N [Concomitant]
     Indication: DIABETES MELLITUS
     Dosage: 90 IU, DAILY
  4. METOPROLOL [Concomitant]
     Indication: HYPERTENSION
     Dosage: 50 MG, 2X/DAY

REACTIONS (2)
  - LIPIDS INCREASED [None]
  - HEADACHE [None]
